FAERS Safety Report 23295722 (Version 1)
Quarter: 2023Q4

REPORT INFORMATION
  Report Type: Report from Study
  Country: US (occurrence: US)
  Receive Date: 20231214
  Receipt Date: 20231214
  Transmission Date: 20240109
  Serious: Yes (Other)
  Sender: FDA-Public Use
  Company Number: US-BAYER-2023A152709

PATIENT
  Age: 51 Year
  Sex: Male

DRUGS (1)
  1. STIVARGA [Suspect]
     Active Substance: REGORAFENIB
     Indication: Rectal cancer
     Dosage: 160 MG, QD

REACTIONS (9)
  - Chapped lips [None]
  - Tumour marker increased [Not Recovered/Not Resolved]
  - Dysphagia [None]
  - Pain in extremity [Recovered/Resolved]
  - Dry skin [None]
  - Oral pain [None]
  - Oropharyngeal pain [None]
  - Fatigue [Not Recovered/Not Resolved]
  - Product dose omission in error [None]
